FAERS Safety Report 8226348-0 (Version None)
Quarter: 2012Q1

REPORT INFORMATION
  Report Type: 
  Country: None (occurrence: None)
  Receive Date: 20120321
  Receipt Date: 20120315
  Transmission Date: 20120608
  Serious: Yes (Other)
  Sender: FDA-Public Use
  Company Number: JP-VERTEX PHARMACEUTICALS INC.-AE-2012-003591

PATIENT
  Age: 34 Year
  Sex: Male

DRUGS (6)
  1. TELAVIC (TELAPREVIR) [Suspect]
     Indication: HEPATITIS C
     Route: 048
     Dates: start: 20120124
  2. PEGINTERFERON ALFA-2B [Concomitant]
     Route: 058
     Dates: start: 20120228
  3. PEGINTERFERON ALFA-2B [Concomitant]
     Route: 058
     Dates: start: 20120306
  4. REBETOL [Concomitant]
     Route: 048
     Dates: start: 20120207
  5. REBETOL [Concomitant]
     Indication: HEPATITIS C
     Route: 048
     Dates: start: 20120124
  6. PEGINTERFERON ALFA-2B [Concomitant]
     Indication: HEPATITIS C
     Route: 058
     Dates: start: 20120124

REACTIONS (1)
  - WHITE BLOOD CELL COUNT DECREASED [None]
